FAERS Safety Report 24268920 (Version 1)
Quarter: 2024Q3

REPORT INFORMATION
  Report Type: Spontaneous
  Country: US (occurrence: None)
  Receive Date: 20240829
  Receipt Date: 20240829
  Transmission Date: 20241016
  Serious: No
  Sender: Public
  Company Number: None

PATIENT
  Age: 37 Year
  Sex: Female

DRUGS (1)
  1. DUPIXENT [Suspect]
     Active Substance: DUPILUMAB
     Indication: Dermatitis atopic
     Dosage: OTHER FREQUENCY : ONCE EVERY 2 WEEKS;?
     Route: 058
     Dates: start: 20231025

REACTIONS (4)
  - Rash macular [None]
  - Erythema [None]
  - Facial pain [None]
  - Dry skin [None]

NARRATIVE: CASE EVENT DATE: 20240829
